FAERS Safety Report 26045324 (Version 1)
Quarter: 2025Q4

REPORT INFORMATION
  Report Type: Report from Study
  Country: SG (occurrence: SG)
  Receive Date: 20251114
  Receipt Date: 20251114
  Transmission Date: 20260118
  Serious: Yes (Other)
  Sender: ROCHE
  Company Number: SG-ROCHE-10000431211

PATIENT
  Age: 72 Year
  Sex: Female

DRUGS (1)
  1. HERCEPTIN [Suspect]
     Active Substance: TRASTUZUMAB
     Indication: Breast cancer
     Route: 058

REACTIONS (5)
  - Deafness [Unknown]
  - Ear operation [Unknown]
  - Pain in extremity [Unknown]
  - Hysterectomy [Unknown]
  - Cancer surgery [Unknown]
